FAERS Safety Report 4738610-4 (Version None)
Quarter: 2005Q3

REPORT INFORMATION
  Report Type: 
  Country: None (occurrence: None)
  Receive Date: 20050802
  Receipt Date: 20050719
  Transmission Date: 20060218
  Serious: Yes (Hospitalization)
  Sender: FDA-Public Use
  Company Number: THYM-10642

PATIENT
  Age: 54 Year
  Sex: Male
  Weight: 100 kg

DRUGS (8)
  1. THYMOGLOBULIN [Suspect]
     Indication: HEART TRANSPLANT REJECTION
     Dosage: 80 MG QD IV
     Route: 042
     Dates: start: 20050705, end: 20050705
  2. THYMOGLOBULIN [Suspect]
     Indication: HEART TRANSPLANT REJECTION
     Dosage: 100 MG QD IV
     Route: 042
     Dates: start: 20050708, end: 20050709
  3. SOLU-MEDROL [Concomitant]
  4. NEORAL [Concomitant]
  5. THYMOGLOBULIN [Suspect]
     Indication: HEART TRANSPLANT REJECTION
     Dosage: 75 MG QD IV
     Route: 042
     Dates: start: 20050710, end: 20050710
  6. PREDNISONE [Concomitant]
  7. BACTRIM DS [Concomitant]
  8. VALCYTE [Concomitant]

REACTIONS (1)
  - SERUM SICKNESS [None]
